FAERS Safety Report 18622334 (Version 1)
Quarter: 2020Q4

REPORT INFORMATION
  Report Type: Spontaneous
  Country: US (occurrence: US)
  Receive Date: 20201216
  Receipt Date: 20201216
  Transmission Date: 20210114
  Serious: Yes (Other)
  Sender: FDA-Public Use
  Company Number: NVSC2020US331850

PATIENT

DRUGS (8)
  1. VORINOSTAT [Suspect]
     Active Substance: VORINOSTAT
     Dosage: 300 MG, QD
     Route: 048
  2. EVEROLIMUS. [Suspect]
     Active Substance: EVEROLIMUS
     Indication: HODGKIN^S DISEASE
     Dosage: 5-10 MG, QD
     Route: 048
  3. EVEROLIMUS. [Suspect]
     Active Substance: EVEROLIMUS
     Dosage: 5-10 MG, QD
     Route: 048
  4. EVEROLIMUS. [Suspect]
     Active Substance: EVEROLIMUS
     Dosage: 5-10 MG, QD
     Route: 048
  5. VORINOSTAT [Suspect]
     Active Substance: VORINOSTAT
     Dosage: 300 MG, QD
     Route: 048
  6. EVEROLIMUS. [Suspect]
     Active Substance: EVEROLIMUS
     Dosage: 10 MG, QD
     Route: 048
  7. VORINOSTAT [Suspect]
     Active Substance: VORINOSTAT
     Indication: HODGKIN^S DISEASE
     Dosage: 300 MG, QD
     Route: 048
  8. VORINOSTAT [Suspect]
     Active Substance: VORINOSTAT
     Dosage: 300 MG,QD
     Route: 048

REACTIONS (7)
  - Respiratory tract infection [Unknown]
  - Dyspepsia [Unknown]
  - Reflux gastritis [Unknown]
  - Thrombocytopenia [Unknown]
  - Neutropenia [Unknown]
  - Mucosal inflammation [Unknown]
  - Product use in unapproved indication [Unknown]
